FAERS Safety Report 11718622 (Version 1)
Quarter: 2015Q4

REPORT INFORMATION
  Report Type: Spontaneous
  Country: US (occurrence: None)
  Receive Date: 20151109
  Receipt Date: 20151109
  Transmission Date: 20160304
  Serious: Yes (Life-Threatening, Hospitalization, Other)
  Sender: FDA-Public Use
  Company Number: US-MDT-ADR-2015-02105

PATIENT
  Age: 67 Year
  Sex: Female

DRUGS (1)
  1. BACLOFEN INTRATHECAL - 2000 MCG/ML [Suspect]
     Active Substance: BACLOFEN
     Dosage: 215 MCG/DAY

REACTIONS (6)
  - Cough [None]
  - Mental status changes [None]
  - Respiratory failure [None]
  - Sepsis [None]
  - Pneumonia [None]
  - Dyspnoea [None]
